FAERS Safety Report 7122228-2 (Version None)
Quarter: 2010Q4

REPORT INFORMATION
  Report Type: 
  Country: None (occurrence: None)
  Receive Date: 20101119
  Receipt Date: 20101119
  Transmission Date: 20110411
  Serious: No
  Sender: FDA-Public Use
  Company Number: None

PATIENT
  Sex: Female

DRUGS (1)
  1. DOXYCYCLINE [Suspect]
     Indication: ACNE
     Dosage: DOXYCYCLINE 100 MG 1 PO BID PO
     Route: 048
     Dates: start: 20100920, end: 20100930

REACTIONS (2)
  - HEADACHE [None]
  - NAUSEA [None]
